FAERS Safety Report 18885462 (Version 1)
Quarter: 2021Q1

REPORT INFORMATION
  Report Type: Spontaneous
  Country: US (occurrence: US)
  Receive Date: 20210212
  Receipt Date: 20210212
  Transmission Date: 20210420
  Serious: No
  Sender: FDA-Public Use
  Company Number: None

PATIENT
  Age: 73 Year
  Sex: Male

DRUGS (6)
  1. MULTI VITAMIN [Concomitant]
     Active Substance: VITAMINS
  2. CARVEDILOL. [Concomitant]
     Active Substance: CARVEDILOL
  3. ELIGARD [Concomitant]
     Active Substance: LEUPROLIDE ACETATE
  4. ABIRATERONE. [Suspect]
     Active Substance: ABIRATERONE ACETATE
     Route: 048
  5. CALCIUM 600 [Concomitant]
     Active Substance: CALCIUM
  6. GLIMEPIRIDE. [Concomitant]
     Active Substance: GLIMEPIRIDE

REACTIONS (1)
  - Hypotension [None]

NARRATIVE: CASE EVENT DATE: 20210212
